FAERS Safety Report 6792009-8 (Version None)
Quarter: 2010Q2

REPORT INFORMATION
  Report Type: 
  Country: None (occurrence: None)
  Receive Date: 20100624
  Receipt Date: 20080819
  Transmission Date: 20101027
  Serious: No
  Sender: FDA-Public Use
  Company Number: US-PFIZER INC-2008059461

PATIENT
  Sex: Female

DRUGS (2)
  1. XALATAN [Suspect]
     Indication: GLAUCOMA
     Route: 047
     Dates: start: 20080627
  2. CARMELLOSE/GLYCEROL [Concomitant]
     Route: 047

REACTIONS (8)
  - ABNORMAL SENSATION IN EYE [None]
  - CIRCUMSTANCE OR INFORMATION CAPABLE OF LEADING TO MEDICATION ERROR [None]
  - DIPLOPIA [None]
  - EYE IRRITATION [None]
  - EYELID OEDEMA [None]
  - INCORRECT STORAGE OF DRUG [None]
  - IRIS HYPERPIGMENTATION [None]
  - SUPERFICIAL INJURY OF EYE [None]
